FAERS Safety Report 18373239 (Version 1)
Quarter: 2020Q4

REPORT INFORMATION
  Report Type: Spontaneous
  Country: US (occurrence: US)
  Receive Date: 20201012
  Receipt Date: 20201012
  Transmission Date: 20210114
  Serious: No
  Sender: FDA-Public Use
  Company Number: US-ASTRAZENECA-2020SF27709

PATIENT
  Sex: Male

DRUGS (4)
  1. REPATHA [Concomitant]
     Active Substance: EVOLOCUMAB
     Dosage: EVERY TWO WEEKS
  2. CRESTOR [Suspect]
     Active Substance: ROSUVASTATIN CALCIUM
     Indication: CARDIAC DISORDER
     Dosage: 40.0MG UNKNOWN
     Route: 048
  3. CRESTOR [Suspect]
     Active Substance: ROSUVASTATIN CALCIUM
     Indication: CARDIAC DISORDER
     Dosage: 20.0MG UNKNOWN
     Route: 048
  4. PRALUENT [Concomitant]
     Active Substance: ALIROCUMAB

REACTIONS (3)
  - Myalgia [Recovering/Resolving]
  - Muscle tightness [Unknown]
  - Lower respiratory tract infection [Recovered/Resolved]
